FAERS Safety Report 16574064 (Version 2)
Quarter: 2019Q3

REPORT INFORMATION
  Report Type: Spontaneous
  Country: US (occurrence: US)
  Receive Date: 20190715
  Receipt Date: 20190715
  Transmission Date: 20191004
  Serious: Yes (Hospitalization)
  Sender: FDA-Public Use
  Company Number: US-CELGENEUS-USA-20190704113

PATIENT
  Age: 73 Year
  Sex: Male

DRUGS (1)
  1. REVLIMID [Suspect]
     Active Substance: LENALIDOMIDE
     Indication: PLASMA CELL MYELOMA
     Dosage: 25 MILLIGRAM
     Route: 048
     Dates: start: 20181106

REACTIONS (5)
  - Hypertension [Unknown]
  - Blood potassium decreased [Unknown]
  - Full blood count decreased [Unknown]
  - Blood cholesterol increased [Unknown]
  - Dehydration [Unknown]

NARRATIVE: CASE EVENT DATE: 201906
